FAERS Safety Report 7383194-8 (Version None)
Quarter: 2011Q1

REPORT INFORMATION
  Report Type: 
  Country: None (occurrence: None)
  Receive Date: 20110330
  Receipt Date: 20110323
  Transmission Date: 20110831
  Serious: Yes (Hospitalization)
  Sender: FDA-Public Use
  Company Number: CA-AMGEN-CANCT2010007800

PATIENT
  Age: 63 Year
  Sex: Male

DRUGS (5)
  1. ATIVAN [Concomitant]
     Dosage: UNK UNK, PRN
     Route: 048
     Dates: start: 20101027, end: 20101102
  2. ETANERCEPT [Suspect]
     Indication: RHEUMATOID ARTHRITIS
     Dosage: UNK UNK, QWK
     Route: 058
     Dates: start: 20100412, end: 20101022
  3. TREXALL [Suspect]
     Indication: RHEUMATOID ARTHRITIS
     Dosage: UNK UNK, QWK
     Route: 058
     Dates: start: 20090629, end: 20101022
  4. CELEBREX [Concomitant]
     Dosage: 200 MG, BID
     Route: 048
     Dates: start: 20090929
  5. FOLVITE [Concomitant]
     Dosage: 5 MG, QWK
     Route: 048
     Dates: start: 20090929

REACTIONS (3)
  - PNEUMONIA [None]
  - SUICIDE ATTEMPT [None]
  - DEPRESSION [None]
